FAERS Safety Report 5637651-2 (Version None)
Quarter: 2008Q1

REPORT INFORMATION
  Report Type: 
  Country: None (occurrence: None)
  Receive Date: 20080225
  Receipt Date: 20080215
  Transmission Date: 20080703
  Serious: Yes (Hospitalization)
  Sender: FDA-Public Use
  Company Number: US-ABBOTT-08P-163-0438677-00

PATIENT
  Sex: Female
  Weight: 25.424 kg

DRUGS (2)
  1. OMNICEF ORAL SUSPENSION [Suspect]
     Indication: EAR INFECTION
     Dosage: CONSUMER DISCARDED
     Route: 048
     Dates: start: 20080127
  2. OMNICEF ORAL SUSPENSION [Suspect]
     Indication: SINUSITIS

REACTIONS (7)
  - ABASIA [None]
  - AURICULAR SWELLING [None]
  - EAR HAEMORRHAGE [None]
  - JOINT SWELLING [None]
  - MOUTH HAEMORRHAGE [None]
  - OEDEMA PERIPHERAL [None]
  - URTICARIA [None]
